FAERS Safety Report 6276177-2 (Version None)
Quarter: 2009Q3

REPORT INFORMATION
  Report Type: 
  Country: None (occurrence: None)
  Receive Date: 20090722
  Receipt Date: 20090714
  Transmission Date: 20100115
  Serious: Yes (Hospitalization, Other)
  Sender: FDA-Public Use
  Company Number: GB-BRISTOL-MYERS SQUIBB COMPANY-13264619

PATIENT
  Age: 22 Year
  Sex: Male

DRUGS (8)
  1. PRAVASTATIN SODIUM [Suspect]
     Indication: HYPERCHOLESTEROLAEMIA
     Dosage: PRAVASTATIN SODIUM - STRENGTH 40MG
     Route: 048
  2. CYCLOSPORINE [Interacting]
     Indication: HEART TRANSPLANT
     Dosage: TROUGH LEVEL ON ADMISSION, 188 UG/LITER,
  3. CYCLOSPORINE [Interacting]
     Indication: IMMUNOSUPPRESSION
     Dosage: TROUGH LEVEL ON ADMISSION, 188 UG/LITER,
  4. AZATHIOPRINE [Concomitant]
     Indication: IMMUNOSUPPRESSION
     Route: 048
  5. PREDNISOLONE [Concomitant]
     Indication: IMMUNOSUPPRESSION
     Route: 065
  6. RAMIPRIL [Concomitant]
     Route: 048
  7. FUROSEMIDE [Concomitant]
     Indication: LOWER RESPIRATORY TRACT INFECTION
     Route: 048
  8. ASPIRIN [Concomitant]
     Route: 048

REACTIONS (7)
  - BLOOD CREATINE INCREASED [None]
  - BLOOD CREATINE PHOSPHOKINASE INCREASED [None]
  - DRUG INTERACTION [None]
  - FIBRIN D DIMER INCREASED [None]
  - OEDEMA PERIPHERAL [None]
  - RHABDOMYOLYSIS [None]
  - TENDERNESS [None]
